FAERS Safety Report 15739229 (Version 2)
Quarter: 2019Q3

REPORT INFORMATION
  Report Type: Spontaneous
  Country: DE (occurrence: DE)
  Receive Date: 20181219
  Receipt Date: 20190725
  Transmission Date: 20191004
  Serious: Yes (Other)
  Sender: FDA-Public Use
  Company Number: DE-TORRENT-00012707

PATIENT
  Age: 64 Year
  Sex: Female
  Weight: 69 kg

DRUGS (5)
  1. CO DIOVAN [Suspect]
     Active Substance: HYDROCHLOROTHIAZIDE\VALSARTAN
     Indication: HYPERTENSION
     Dosage: 1-0-0
     Dates: start: 200707, end: 200812
  2. VALSARTAN PLUS [Suspect]
     Active Substance: HYDROCHLOROTHIAZIDE\VALSARTAN
     Indication: HYPERTENSION
     Dosage: 1-0-0
     Dates: start: 201203, end: 201208
  3. CO DIOVAN [Suspect]
     Active Substance: HYDROCHLOROTHIAZIDE\VALSARTAN
     Indication: HYPERTENSION
     Dosage: 1/2-0-0
     Dates: start: 200901, end: 201202
  4. VALSARTAN PLUS HYDROCHLOROTHIAZIDE [Suspect]
     Active Substance: HYDROCHLOROTHIAZIDE\VALSARTAN
     Indication: HYPERTENSION
     Dosage: 1-0-0
     Dates: start: 201209, end: 201210
  5. VALSARTAN. [Suspect]
     Active Substance: VALSARTAN
     Indication: HYPERTENSION
     Dosage: 1-0-0
     Route: 048
     Dates: start: 201507, end: 201801

REACTIONS (3)
  - Bladder cancer [Unknown]
  - Bladder transitional cell carcinoma recurrent [Not Recovered/Not Resolved]
  - Bladder transitional cell carcinoma [Recovered/Resolved]

NARRATIVE: CASE EVENT DATE: 2015
